FAERS Safety Report 18745805 (Version 1)
Quarter: 2021Q1

REPORT INFORMATION
  Report Type: Spontaneous
  Country: FR (occurrence: FR)
  Receive Date: 20210115
  Receipt Date: 20210115
  Transmission Date: 20210419
  Serious: Yes (Death)
  Sender: FDA-Public Use
  Company Number: FR-TEVA-2021-FR-1868477

PATIENT
  Age: 72 Year
  Sex: Female
  Weight: 48 kg

DRUGS (16)
  1. IMOVANE [Concomitant]
     Active Substance: ZOPICLONE
  2. DAKTARIN [Concomitant]
     Active Substance: MICONAZOLE NITRATE
  3. CELIPROLOL [Suspect]
     Active Substance: CELIPROLOL
     Indication: HYPERTENSION
     Dosage: 200MG
     Route: 048
     Dates: start: 2005, end: 20201127
  4. INDAPAMIDE. [Concomitant]
     Active Substance: INDAPAMIDE
  5. ULTIBRO BREEZHALER [Concomitant]
     Active Substance: GLYCOPYRRONIUM\INDACATEROL
  6. INEXIUM 40 MG, COMPRIME GASTRO?RESISTANT [Concomitant]
     Active Substance: ESOMEPRAZOLE MAGNESIUM
  7. ATORVASTATINE [Suspect]
     Active Substance: ATORVASTATIN
     Indication: PRODUCT USED FOR UNKNOWN INDICATION
     Dosage: 20MG
     Route: 048
     Dates: end: 20201127
  8. LOSARTAN POTASSIQUE [Concomitant]
     Active Substance: LOSARTAN POTASSIUM
  9. XANAX [Concomitant]
     Active Substance: ALPRAZOLAM
  10. EUTHYROX [Concomitant]
     Active Substance: LEVOTHYROXINE SODIUM
  11. ACTONEL [Concomitant]
     Active Substance: RISEDRONATE SODIUM
  12. HEXAQUINE [Concomitant]
     Active Substance: NIAOULI OIL\QUININE BENZOATE\THIAMINE HYDROCHLORIDE
  13. TOPALGIC L.P. 200 MG, COMPRIME A LIBERATION PROLONGEE [Concomitant]
     Active Substance: TRAMADOL HYDROCHLORIDE
  14. LERCANIDIPINE (CHLORHYDRATE DE) [Concomitant]
     Active Substance: LERCANIDIPINE HYDROCHLORIDE
  15. BICARBONATE DE SODIUM [Concomitant]
     Active Substance: SODIUM BICARBONATE
  16. VOLTARENE [Concomitant]

REACTIONS (3)
  - Pulmonary fibrosis [Fatal]
  - Organising pneumonia [Fatal]
  - Interstitial lung disease [Fatal]

NARRATIVE: CASE EVENT DATE: 20201126
